FAERS Safety Report 6099939-3 (Version None)
Quarter: 2009Q1

REPORT INFORMATION
  Report Type: 
  Country: None (occurrence: None)
  Receive Date: 20090226
  Receipt Date: 20090211
  Transmission Date: 20090719
  Serious: Yes (Hospitalization, Disabling, Other)
  Sender: FDA-Public Use
  Company Number: DSA_33247_2009

PATIENT
  Age: 68 Year
  Sex: Female

DRUGS (2)
  1. VASOTEC [Suspect]
     Indication: HYPERTENSION
     Dosage: (DF)
     Dates: start: 20050101
  2. SIMVASTATIN [Suspect]
     Indication: HYPERCHOLESTEROLAEMIA
     Dosage: (DF)
     Dates: start: 20050101, end: 20050101

REACTIONS (3)
  - ALANINE AMINOTRANSFERASE INCREASED [None]
  - ASPARTATE AMINOTRANSFERASE INCREASED [None]
  - RHABDOMYOLYSIS [None]
